FAERS Safety Report 5701233-4 (Version None)
Quarter: 2008Q2

REPORT INFORMATION
  Report Type: 
  Country: None (occurrence: None)
  Receive Date: 20080410
  Receipt Date: 20080313
  Transmission Date: 20081010
  Serious: No
  Sender: FDA-Public Use
  Company Number: US-BOEHRINGER INGELHEIM GMBH, GERMANY-2008-BP-03971BP

PATIENT
  Sex: Male

DRUGS (8)
  1. FLOMAX [Suspect]
     Indication: BENIGN PROSTATIC HYPERPLASIA
     Dates: start: 20070101, end: 20080101
  2. FLOMAX [Suspect]
     Indication: URINE FLOW DECREASED
  3. FLOMAX [Suspect]
     Indication: URINARY RETENTION
  4. FLOMAX [Suspect]
     Indication: PROSTATITIS
  5. FLOMAX [Suspect]
     Indication: NOCTURIA
  6. ANDROGEL [Concomitant]
  7. SIMVASTATIN [Concomitant]
  8. ZEGERID [Concomitant]

REACTIONS (3)
  - NOCTURIA [None]
  - SOMNOLENCE [None]
  - URINE FLOW DECREASED [None]
